FAERS Safety Report 13924010 (Version 1)
Quarter: 2017Q3

REPORT INFORMATION
  Report Type: Spontaneous
  Country: US (occurrence: None)
  Receive Date: 20170831
  Receipt Date: 20170831
  Transmission Date: 20171127
  Serious: Yes (Other)
  Sender: FDA-Public Use
  Company Number: None

PATIENT
  Sex: Female

DRUGS (1)
  1. ALTABAX [Suspect]
     Active Substance: RETAPAMULIN
     Indication: IMPETIGO
     Dosage: APPLY TO THE AFFECTED AREA
     Route: 061
     Dates: start: 20170821, end: 20170821

REACTIONS (3)
  - Application site erythema [None]
  - Screaming [None]
  - Application site pain [None]

NARRATIVE: CASE EVENT DATE: 20170821
